FAERS Safety Report 15120288 (Version 1)
Quarter: 2018Q3

REPORT INFORMATION
  Report Type: Spontaneous
  Country: DE (occurrence: DE)
  Receive Date: 20180709
  Receipt Date: 20180709
  Transmission Date: 20181010
  Serious: Yes (Other)
  Sender: FDA-Public Use
  Company Number: DE-TORRENT-00008773

PATIENT
  Age: 1 Day
  Sex: Male
  Weight: 3 kg

DRUGS (5)
  1. BECLOMET EASYHALER [Concomitant]
     Indication: ASTHMA
     Dosage: UNKNOWN
     Route: 064
  2. BECLOMET [Concomitant]
     Indication: HYPERSENSITIVITY
     Dosage: UNKNOWN
     Route: 064
  3. L?THYROX 75 [Concomitant]
     Indication: HYPOTHYROIDISM
     Dosage: 75 [G/D ]
     Route: 064
     Dates: start: 20170103, end: 20170917
  4. CETIRIZINE [Concomitant]
     Active Substance: CETIRIZINE HYDROCHLORIDE
     Indication: HYPERSENSITIVITY
     Dosage: UNKNOWN
     Route: 064
     Dates: start: 20170103, end: 20170917
  5. VENLAFAXINE [Suspect]
     Active Substance: VENLAFAXINE HYDROCHLORIDE
     Indication: DEPRESSION
     Dosage: 75 [MG/D ]/ ALTERNATING 37.5 AND 75 MG/D
     Route: 064
     Dates: start: 20170103, end: 20170917

REACTIONS (8)
  - Infantile apnoea [Recovered/Resolved]
  - Foetal exposure during pregnancy [Unknown]
  - Agitation neonatal [Recovered/Resolved]
  - Myoclonus [Recovered/Resolved]
  - Premature baby [Unknown]
  - Respiratory disorder neonatal [Recovered/Resolved]
  - Bradycardia neonatal [Recovered/Resolved]
  - Temperature regulation disorder [Recovered/Resolved]

NARRATIVE: CASE EVENT DATE: 20170917
